FAERS Safety Report 14263940 (Version 3)
Quarter: 2018Q2

REPORT INFORMATION
  Report Type: Spontaneous
  Country: US (occurrence: US)
  Receive Date: 20171208
  Receipt Date: 20180606
  Transmission Date: 20180711
  Serious: No
  Sender: FDA-Public Use
  Company Number: US-PTC THERAPEUTICS, INC.-US-2017PTC001379

PATIENT

DRUGS (2)
  1. EMFLAZA [Suspect]
     Active Substance: DEFLAZACORT
     Indication: DUCHENNE MUSCULAR DYSTROPHY
     Dosage: 0.6 ML, QD
     Route: 048
     Dates: start: 20170929
  2. EMFLAZA [Suspect]
     Active Substance: DEFLAZACORT
     Dosage: 0.4 ML, QD
     Route: 048
     Dates: start: 20180124

REACTIONS (7)
  - Psychomotor hyperactivity [Unknown]
  - Off label use [Unknown]
  - Disturbance in attention [Unknown]
  - Constipation [Not Recovered/Not Resolved]
  - Restless legs syndrome [Unknown]
  - Middle insomnia [Unknown]
  - Crying [Not Recovered/Not Resolved]

NARRATIVE: CASE EVENT DATE: 20170928
